FAERS Safety Report 5799059-9 (Version None)
Quarter: 2008Q3

REPORT INFORMATION
  Report Type: 
  Country: None (occurrence: None)
  Receive Date: 20080702
  Receipt Date: 20080627
  Transmission Date: 20090109
  Serious: Yes (Other)
  Sender: FDA-Public Use
  Company Number: KR-BOEHRINGER INGELHEIM GMBH, GERMANY-2008-BP-09996RO

PATIENT
  Age: 67 Year
  Sex: Female

DRUGS (5)
  1. METHOTREXATE [Suspect]
     Indication: DERMATOMYOSITIS
     Dates: start: 20050901
  2. PREDNISOLONE [Suspect]
     Indication: DERMATOMYOSITIS
  3. HYDROXYCHLOROQUINE SULFATE [Suspect]
     Indication: DERMATOMYOSITIS
  4. NEUPOGEN [Concomitant]
     Indication: THROMBOCYTOPENIA
  5. NEUPOGEN [Concomitant]
     Indication: LEUKOPENIA

REACTIONS (9)
  - ALANINE AMINOTRANSFERASE INCREASED [None]
  - ANAEMIA [None]
  - ANOREXIA [None]
  - ASPARTATE AMINOTRANSFERASE INCREASED [None]
  - LEUKOPENIA [None]
  - MOUTH ULCERATION [None]
  - NAUSEA [None]
  - SKIN TOXICITY [None]
  - THROMBOCYTOPENIA [None]
